FAERS Safety Report 7497095-8 (Version None)
Quarter: 2011Q2

REPORT INFORMATION
  Report Type: 
  Country: None (occurrence: None)
  Receive Date: 20110523
  Receipt Date: 20110513
  Transmission Date: 20111010
  Serious: Yes (Other)
  Sender: FDA-Public Use
  Company Number: US-ASTRAZENECA-2011SE29227

PATIENT
  Age: 64 Year
  Sex: Male

DRUGS (2)
  1. PRILOSEC [Suspect]
     Route: 048
  2. SYMBICORT [Suspect]
     Route: 055

REACTIONS (4)
  - GLOSSECTOMY [None]
  - HIP ARTHROPLASTY [None]
  - JOINT DISLOCATION [None]
  - LIP AND/OR ORAL CAVITY CANCER [None]
